FAERS Safety Report 4277458-4 (Version None)
Quarter: 2004Q1

REPORT INFORMATION
  Report Type: 
  Country: None (occurrence: None)
  Receive Date: 20040122
  Receipt Date: 20031217
  Transmission Date: 20041129
  Serious: Yes (Disabling)
  Sender: FDA-Public Use
  Company Number: JP-ROCHE-354084

PATIENT
  Age: 55 Year
  Sex: Male

DRUGS (3)
  1. MYCOPHENOLATE MOFETIL [Suspect]
     Route: 048
     Dates: start: 20010602
  2. PREDONINE [Suspect]
     Route: 048
     Dates: start: 20010601
  3. NEORAL [Concomitant]
     Route: 048
     Dates: start: 20010602

REACTIONS (1)
  - ASEPTIC NECROSIS BONE [None]
